FAERS Safety Report 18795732 (Version 1)
Quarter: 2021Q1

REPORT INFORMATION
  Report Type: Spontaneous
  Country: CA (occurrence: CA)
  Receive Date: 20210127
  Receipt Date: 20210127
  Transmission Date: 20210419
  Serious: Yes (Life-Threatening, Hospitalization)
  Sender: FDA-Public Use
  Company Number: CA-TEVA-2021-CA-1871775

PATIENT
  Age: 1 Year
  Sex: Female
  Weight: 12 kg

DRUGS (6)
  1. DOXORUBICIN LIPOSOMAL [Suspect]
     Active Substance: DOXORUBICIN
     Indication: HEPATOBLASTOMA
     Route: 042
  2. TRIMETHOPRIM SULFAMETHOXAZOLE [Concomitant]
     Active Substance: SULFAMETHOXAZOLE\TRIMETHOPRIM
  3. CARBOPLATIN. [Suspect]
     Active Substance: CARBOPLATIN
     Indication: HEPATOBLASTOMA
     Route: 042
  4. OMEPRAZOLE. [Concomitant]
     Active Substance: OMEPRAZOLE
  5. ONDANSETRON [Concomitant]
     Active Substance: ONDANSETRON
  6. ZINECARD [Concomitant]
     Active Substance: DEXRAZOXANE HYDROCHLORIDE

REACTIONS (3)
  - Human rhinovirus test positive [Recovered/Resolved]
  - Enterovirus test positive [Recovered/Resolved]
  - Febrile neutropenia [Recovered/Resolved]
